FAERS Safety Report 11240051 (Version 5)
Quarter: 2017Q3

REPORT INFORMATION
  Report Type: Spontaneous
  Country: US (occurrence: US)
  Receive Date: 20150706
  Receipt Date: 20170706
  Transmission Date: 20171127
  Serious: Yes (Other)
  Sender: FDA-Public Use
  Company Number: US-PFIZER INC-2015220059

PATIENT
  Age: 69 Year
  Sex: Female

DRUGS (26)
  1. OXYCODONE HYDROCHLORIDE. [Concomitant]
     Active Substance: OXYCODONE HYDROCHLORIDE
     Dosage: 10 MG, 2X/DAY (EVERY 12 HRS)
     Route: 048
  2. TUMS EX [Concomitant]
     Active Substance: CALCIUM CARBONATE
     Dosage: 750 MG, 2X/DAY (TAKE 4 TABS BY MOUTH 2 TIMES A DAY)
     Route: 048
     Dates: start: 20150608
  3. OXYCODONE HYDROCHLORIDE. [Concomitant]
     Active Substance: OXYCODONE HYDROCHLORIDE
     Indication: PAIN
     Dosage: 5 MG, AS NEEDED (EVERY 4 HOURS)
     Route: 048
     Dates: start: 20150402
  4. BACLOFEN. [Concomitant]
     Active Substance: BACLOFEN
     Dosage: 10 MG, UNK
     Route: 048
  5. DECADRON [Concomitant]
     Active Substance: DEXAMETHASONE
     Dosage: 4 MG, 2X/DAY
     Route: 048
  6. ATIVAN [Concomitant]
     Active Substance: LORAZEPAM
     Dosage: 0.5 MG, 2X/DAY
     Route: 048
     Dates: start: 20150527
  7. SYNTHROID [Concomitant]
     Active Substance: LEVOTHYROXINE SODIUM
     Dosage: 50 ?G, UNK (TAKE 2 TABLETS MONDAY, WEDNESDAY AND FRIDAY AND 1, 1/2 TABLET ON OTHER DAYS)
     Dates: start: 20150313
  8. CALCIUM GLUCONATE. [Concomitant]
     Active Substance: CALCIUM GLUCONATE
     Dosage: 1 G, UNK
  9. IBRANCE [Suspect]
     Active Substance: PALBOCICLIB
     Indication: BREAST CANCER METASTATIC
     Dosage: 125 MG, CYCLIC (Q DAYS WITH FOOD 21 DAYS THEN 7 DAYS OFF)
     Route: 048
     Dates: start: 20150612
  10. FEMARA [Concomitant]
     Active Substance: LETROZOLE
     Dosage: 2.5 MG, DAILY
     Route: 048
  11. DRISDOL [Concomitant]
     Active Substance: ERGOCALCIFEROL
     Dosage: 50000 UNK, (WEEK FOR 7 DOSES)
     Route: 048
  12. LEXAPRO [Concomitant]
     Active Substance: ESCITALOPRAM OXALATE
     Dosage: 10 MG, 1X/DAY
     Route: 048
     Dates: start: 20150126
  13. XANAX [Concomitant]
     Active Substance: ALPRAZOLAM
     Dosage: 1 MG, (45 MIN PRIOR TO MRI)
  14. LIDOCAINE. [Concomitant]
     Active Substance: LIDOCAINE
     Indication: PAIN
     Dosage: UNK, AS NEEDED
     Route: 061
     Dates: start: 20150710
  15. ANUSOL (PFIZER) [Concomitant]
     Indication: PROCTALGIA
     Dosage: 1-12.5%
     Route: 054
     Dates: start: 20150709
  16. LOMOTIL [Concomitant]
     Active Substance: ATROPINE SULFATE\DIPHENOXYLATE HYDROCHLORIDE
     Indication: DIARRHOEA
     Dosage: UNK, 4X/DAY (TAKE 1 TAB BY MOUTH 4TIMES A DAY AS NEEDED)
     Route: 048
  17. DURAGESIC [Concomitant]
     Active Substance: FENTANYL
     Indication: PAIN
     Dosage: 100 UG, UNK, (50 MCG/HR), (APPLY 2 PATCHES TOPICALLY OR 100 MCG FOR PAIN EVERY 3 DAYS)
     Route: 061
  18. PRINIVIL [Concomitant]
     Active Substance: LISINOPRIL
     Dosage: 10 MG, 1X/DAY
     Route: 048
  19. IBRANCE [Suspect]
     Active Substance: PALBOCICLIB
     Dosage: 100 MG, CYCLIC (21 DAYS THEN TAKE 7 DAYS OFF THEN REPEAT)
     Route: 048
     Dates: start: 20150721, end: 20150730
  20. DRISDOL [Concomitant]
     Active Substance: ERGOCALCIFEROL
     Dosage: 5000 IU, WEEKLY
     Route: 048
     Dates: start: 20150608
  21. ACETAMINOPHEN W/HYDROCODONE [Concomitant]
     Active Substance: ACETAMINOPHEN\HYDROCODONE
     Dosage: UNK [HYDROCODONE 5 MG]/[PARACETAMOL 325 MG]
  22. MORPHINE SULFATE. [Concomitant]
     Active Substance: MORPHINE SULFATE
     Dosage: 15 MG, UNK (SIG: TAKE BY MOUTH EVERY 4 HOURS,AS NEEDED)
     Route: 048
  23. ZOFRAN [Concomitant]
     Active Substance: ONDANSETRON HYDROCHLORIDE
     Indication: NAUSEA
     Dosage: 4 MG, AS NEEDED (ONE TABLET BY MOUTH EVERY 8 HOURS AS NEEDED )
     Route: 048
     Dates: start: 20150608
  24. DECADRON [Concomitant]
     Active Substance: DEXAMETHASONE
     Dosage: 4 MG, DAILY
     Route: 048
     Dates: start: 20150608, end: 20150805
  25. TUMS EX [Concomitant]
     Active Substance: CALCIUM CARBONATE
     Dosage: 2250 MG, 2X/DAY
     Route: 048
  26. SIMVASTATIN. [Concomitant]
     Active Substance: SIMVASTATIN
     Dosage: 40 MG, 1X/DAY
     Route: 048

REACTIONS (9)
  - Fatigue [Unknown]
  - Protein total decreased [Unknown]
  - Hypoaesthesia [Unknown]
  - Decreased appetite [Unknown]
  - Blood glucose increased [Unknown]
  - Dry mouth [Unknown]
  - Anaemia [Unknown]
  - Paraesthesia [Unknown]
  - Diarrhoea [Unknown]

NARRATIVE: CASE EVENT DATE: 2015
